FAERS Safety Report 23045906 (Version 1)
Quarter: 2023Q4

REPORT INFORMATION
  Report Type: Report from Study
  Country: US (occurrence: US)
  Receive Date: 20231009
  Receipt Date: 20231009
  Transmission Date: 20240109
  Serious: Yes (Other)
  Sender: FDA-Public Use
  Company Number: US-Merck Healthcare KGaA-2023479632

PATIENT
  Sex: Male

DRUGS (1)
  1. MAVENCLAD [Suspect]
     Active Substance: CLADRIBINE
     Indication: Multiple sclerosis
     Dosage: MAVENCLAD: MAVENCLAD 10MG TABLET
     Route: 048
     Dates: start: 20230808

REACTIONS (1)
  - Immunoglobulin therapy [Unknown]
